FAERS Safety Report 4939460-6 (Version None)
Quarter: 2006Q1

REPORT INFORMATION
  Report Type: 
  Country: None (occurrence: None)
  Receive Date: 20060306
  Receipt Date: 20060221
  Transmission Date: 20060701
  Serious: Yes (Other)
  Sender: FDA-Public Use
  Company Number: HQWYE990124FEB06

PATIENT
  Age: 66 Year
  Sex: Male

DRUGS (5)
  1. RAPAMUNE [Suspect]
     Indication: RENAL TRANSPLANT
     Dosage: SEE IMAGE
     Dates: start: 20040701
  2. MYCOPHENOLATE MOFETIL (MYCOPHENOLATE MOFETIL) [Concomitant]
  3. MYCOPHENOLATE MOFETIL (MYCOPHENOLATE MOFETIL) [Concomitant]
  4. PREDNISONE TAB [Concomitant]
  5. PREDNISONE TAB [Concomitant]

REACTIONS (2)
  - GLOMERULONEPHRITIS MINIMAL LESION [None]
  - IMMUNOSUPPRESSANT DRUG LEVEL INCREASED [None]
